FAERS Safety Report 6176067-X (Version None)
Quarter: 2009Q2

REPORT INFORMATION
  Report Type: 
  Country: None (occurrence: None)
  Receive Date: 20090501
  Receipt Date: 20090428
  Transmission Date: 20091009
  Serious: Yes (Hospitalization)
  Sender: FDA-Public Use
  Company Number: US-GILEAD-2009-0021692

PATIENT
  Sex: Female
  Weight: 86.26 kg

DRUGS (13)
  1. LETAIRIS [Suspect]
     Indication: PULMONARY ARTERIAL HYPERTENSION
     Route: 048
     Dates: start: 20090320
  2. REVATIO [Concomitant]
  3. DILTIAZEM [Concomitant]
  4. CRESTOR [Concomitant]
  5. PLAVIX [Concomitant]
  6. LASIX [Concomitant]
  7. GABAPENTIN [Concomitant]
  8. ACTIVELLA [Concomitant]
  9. CYMBALTA [Concomitant]
  10. XANAX [Concomitant]
  11. PROZAC [Concomitant]
  12. LOVAZA [Concomitant]
  13. CALCITRIOL [Concomitant]

REACTIONS (2)
  - DYSPNOEA [None]
  - HEART VALVE INCOMPETENCE [None]
